FAERS Safety Report 6189006-2 (Version None)
Quarter: 2009Q2

REPORT INFORMATION
  Report Type: 
  Country: None (occurrence: None)
  Receive Date: 20090513
  Receipt Date: 20090430
  Transmission Date: 20091009
  Serious: Yes (Other)
  Sender: FDA-Public Use
  Company Number: TR-PFIZER INC-2009205971

PATIENT
  Age: 28 Year

DRUGS (1)
  1. SILDENAFIL CITRATE [Suspect]

REACTIONS (5)
  - AORTIC DISSECTION [None]
  - CARDIAC MURMUR [None]
  - LEFT VENTRICULAR HYPERTROPHY [None]
  - SYNCOPE [None]
  - TACHYCARDIA [None]
